FAERS Safety Report 5135198-3 (Version None)
Quarter: 2006Q4

REPORT INFORMATION
  Report Type: 
  Country: None (occurrence: None)
  Receive Date: 20061024
  Receipt Date: 20061024
  Transmission Date: 20070319
  Serious: Yes (Life-Threatening)
  Sender: FDA-Public Use
  Company Number: None

PATIENT
  Age: 47 Year
  Sex: Male
  Weight: 90.7194 kg

DRUGS (3)
  1. ABILIFY [Suspect]
     Indication: BIPOLAR DISORDER
     Dosage: 10 MG Q HS PO
     Route: 048
     Dates: start: 20060926, end: 20060927
  2. ABILIFY [Suspect]
     Indication: SCHIZOAFFECTIVE DISORDER
     Dosage: 10 MG Q HS PO
     Route: 048
     Dates: start: 20060926, end: 20060927
  3. DEPAKOTE [Concomitant]

REACTIONS (7)
  - BIPOLAR DISORDER [None]
  - DYSPNOEA [None]
  - DYSTONIA [None]
  - ILL-DEFINED DISORDER [None]
  - SCHIZOAFFECTIVE DISORDER [None]
  - THERAPY NON-RESPONDER [None]
  - VOMITING PROJECTILE [None]
